FAERS Safety Report 20430678 (Version 1)
Quarter: 2022Q1

REPORT INFORMATION
  Report Type: Report from Study
  Country: FR (occurrence: FR)
  Receive Date: 20220204
  Receipt Date: 20220204
  Transmission Date: 20220423
  Serious: Yes (Hospitalization)
  Sender: FDA-Public Use
  Company Number: FR-SERVIER-S21001351

PATIENT

DRUGS (10)
  1. PEGASPARGASE [Suspect]
     Active Substance: PEGASPARGASE
     Indication: Acute lymphocytic leukaemia
     Dosage: 1425 IU, QD, ON D4
     Route: 042
     Dates: start: 20200925, end: 20200925
  2. TN UNSPECIFIED [Concomitant]
     Indication: Acute lymphocytic leukaemia
     Dosage: 1.7 MG, ON D1, D8, D15, D22
     Route: 042
     Dates: start: 20200922, end: 20201015
  3. ADRIAMYCIN [Concomitant]
     Active Substance: DOXORUBICIN HYDROCHLORIDE
     Indication: Acute lymphocytic leukaemia
     Dosage: 33 MG, ON D1, D8, D15, D22
     Route: 042
     Dates: start: 20200922, end: 20201015
  4. TN UNSPECIFIED [Concomitant]
     Indication: Acute lymphocytic leukaemia
     Dosage: 30 MG, ON D4, D31
     Route: 037
     Dates: start: 20200928, end: 20201022
  5. TN UNSPECIFIED [Concomitant]
     Dosage: 336 MG, ON D31 TO D34, D38 TO D41
     Route: 042
     Dates: start: 20201022, end: 20201105
  6. TN UNSPECIFIED [Concomitant]
     Indication: Acute lymphocytic leukaemia
     Dosage: 15 MG, ON D4, D31
     Route: 037
     Dates: start: 20200928, end: 20201022
  7. TN UNSPECIFIED [Concomitant]
     Indication: Acute lymphocytic leukaemia
     Dosage: 15 MG, ON D4, D31
     Route: 037
     Dates: start: 20200928, end: 20201022
  8. TN UNSPECIFIED [Concomitant]
     Indication: Acute lymphocytic leukaemia
     Dosage: 1120 MG, ON D29
     Route: 042
     Dates: start: 20201020, end: 20201020
  9. TN UNSPECIFIED [Concomitant]
     Indication: Acute lymphocytic leukaemia
     Dosage: 7.5 MG, ON D1 TO D7, D15 TO D21
     Route: 048
     Dates: start: 20200922, end: 20201014
  10. TN UNSPECIFIED [Concomitant]
     Indication: Acute lymphocytic leukaemia
     Dosage: 60 MG, ON D29 TO D42
     Route: 048
     Dates: start: 20201020, end: 20201106

REACTIONS (1)
  - Escherichia sepsis [Recovered/Resolved]

NARRATIVE: CASE EVENT DATE: 20201028
